FAERS Safety Report 5502319-X (Version None)
Quarter: 2007Q4

REPORT INFORMATION
  Report Type: 
  Country: None (occurrence: None)
  Receive Date: 20071030
  Receipt Date: 20071025
  Transmission Date: 20080405
  Serious: Yes (Death, Hospitalization)
  Sender: FDA-Public Use
  Company Number: EG-SANOFI-SYNTHELABO-F01200701376

PATIENT
  Sex: Female
  Weight: 65 kg

DRUGS (3)
  1. LEUCOVORIN [Suspect]
     Route: 041
     Dates: start: 20061218, end: 20061219
  2. FLUOROURACIL [Suspect]
     Dosage: 400 MG/M2 BOLUS FOLLOWED BY 600 MG/M2 INFUSION
     Route: 041
     Dates: start: 20061218, end: 20061219
  3. OXALIPLATIN [Suspect]
     Indication: COLON CANCER
     Route: 041
     Dates: start: 20061218, end: 20061218

REACTIONS (2)
  - PANCYTOPENIA [None]
  - PNEUMONIA [None]
